FAERS Safety Report 5231603-2 (Version None)
Quarter: 2007Q1

REPORT INFORMATION
  Report Type: 
  Country: None (occurrence: None)
  Receive Date: 20070202
  Receipt Date: 20070124
  Transmission Date: 20070707
  Serious: Yes (Congenital Anomaly)
  Sender: FDA-Public Use
  Company Number: 33909

PATIENT
  Sex: Male
  Weight: 11.3399 kg

DRUGS (1)
  1. METHOTREXATE [Suspect]
     Indication: ABORTION
     Dosage: 1 DOSE ORAL A
     Route: 048
     Dates: start: 20040310, end: 20040420

REACTIONS (23)
  - AGITATION [None]
  - BLOOD TEST ABNORMAL [None]
  - CONGENITAL ANOMALY [None]
  - DEHYDRATION [None]
  - DIARRHOEA [None]
  - DRUG EXPOSURE DURING PREGNANCY [None]
  - FAECES DISCOLOURED [None]
  - GAIT DISTURBANCE [None]
  - GASTROOESOPHAGEAL REFLUX DISEASE [None]
  - GROWTH RETARDATION [None]
  - HYPERTONIA [None]
  - IMMUNE SYSTEM DISORDER [None]
  - INFECTION [None]
  - LACTOSE INTOLERANCE [None]
  - MUSCULOSKELETAL STIFFNESS [None]
  - PSYCHOMOTOR HYPERACTIVITY [None]
  - PYREXIA [None]
  - RASH [None]
  - SMALL FOR DATES BABY [None]
  - SPEECH DISORDER DEVELOPMENTAL [None]
  - THINKING ABNORMAL [None]
  - TREMOR [None]
  - VOMITING [None]
